FAERS Safety Report 9018772 (Version 2)
Quarter: 2013Q1

REPORT INFORMATION
  Report Type: Spontaneous
  Country: US (occurrence: US)
  Receive Date: 20130118
  Receipt Date: 20130304
  Transmission Date: 20140127
  Serious: Yes (Other)
  Sender: FDA-Public Use
  Company Number: US-PFIZER INC-2013018637

PATIENT
  Age: 14 Year
  Sex: Female
  Weight: 68.03 kg

DRUGS (3)
  1. ADVIL COLD AND SINUS [Suspect]
     Indication: NASOPHARYNGITIS
     Dosage: 200/30 MG, 2X/DAY
     Dates: start: 201301, end: 20130115
  2. ADVIL COLD AND SINUS [Suspect]
     Dosage: UNK
  3. DORYX [Concomitant]
     Indication: ACNE
     Dosage: 150 MG, DAILY

REACTIONS (1)
  - Anxiety [Recovered/Resolved]
